FAERS Safety Report 6153965-4 (Version None)
Quarter: 2009Q2

REPORT INFORMATION
  Report Type: 
  Country: None (occurrence: None)
  Receive Date: 20090414
  Receipt Date: 20090406
  Transmission Date: 20091009
  Serious: Yes (Hospitalization)
  Sender: FDA-Public Use
  Company Number: US-BIOGENIDEC-2009BI010736

PATIENT
  Age: 51 Year
  Sex: Female

DRUGS (2)
  1. AVONEX [Suspect]
     Indication: MULTIPLE SCLEROSIS
     Route: 030
     Dates: start: 20040517, end: 20080101
  2. AVONEX [Suspect]
     Route: 030
     Dates: start: 20090403

REACTIONS (5)
  - CHOLECYSTECTOMY [None]
  - INFECTION [None]
  - MULTIPLE SCLEROSIS RELAPSE [None]
  - PANCREATITIS [None]
  - PNEUMONIA [None]
